FAERS Safety Report 5342480-3 (Version None)
Quarter: 2007Q2

REPORT INFORMATION
  Report Type: 
  Country: None (occurrence: None)
  Receive Date: 20070601
  Receipt Date: 20070521
  Transmission Date: 20071010
  Serious: Yes (Other)
  Sender: FDA-Public Use
  Company Number: US-SHR-US-2007-006593

PATIENT
  Age: 66 Year
  Sex: Male
  Weight: 86 kg

DRUGS (25)
  1. MAGNEVIST [Suspect]
     Dosage: UNK, 1 DOSE
     Route: 042
     Dates: start: 20010824, end: 20010824
  2. MAGNEVIST [Suspect]
     Dosage: UNK, 1 DOSE
     Route: 042
     Dates: start: 20020614, end: 20020614
  3. MAGNEVIST [Suspect]
     Dosage: UNK, 1 DOSE
     Route: 042
     Dates: start: 20021214, end: 20021214
  4. MAGNEVIST [Suspect]
     Dosage: UNK, 1 DOSE
     Route: 042
     Dates: start: 20050422, end: 20050422
  5. MAGNEVIST [Suspect]
     Dosage: UNK, 1 DOSE
     Route: 042
     Dates: start: 20050424, end: 20050424
  6. MAGNEVIST [Suspect]
     Dosage: 50 ML, 1 DOSE
     Route: 042
     Dates: start: 20050628, end: 20050628
  7. MAGNEVIST [Suspect]
     Dosage: UNK, 1 DOSE
     Route: 042
     Dates: start: 20051102, end: 20051102
  8. MAGNEVIST [Suspect]
     Dosage: 50 ML, 1 DOSE
     Route: 042
     Dates: start: 20051213, end: 20051213
  9. DIOVAN [Concomitant]
  10. LOPRESSOR [Concomitant]
  11. CARDURA                                 /IRE/ [Concomitant]
  12. DILTIAZEM [Concomitant]
  13. HYDRALAZINE HCL [Concomitant]
     Route: 042
  14. LASIX [Concomitant]
  15. PERCOCET [Concomitant]
  16. PREDNISONE TAB [Concomitant]
  17. CELEBREX [Concomitant]
  18. CLINDAMYCIN HCL [Concomitant]
  19. METOPROLOL SUCCINATE [Concomitant]
  20. CARTIA XT [Concomitant]
  21. ALLOPURINOL [Concomitant]
  22. AMIODARONE HCL [Concomitant]
  23. DIGOXIN [Concomitant]
  24. NSAID'S [Concomitant]
  25. WARFARIN SODIUM [Concomitant]

REACTIONS (2)
  - NEPHROGENIC FIBROSING DERMOPATHY [None]
  - SCLERODERMA [None]
